FAERS Safety Report 15849408 (Version 2)
Quarter: 2019Q2

REPORT INFORMATION
  Report Type: Spontaneous
  Country: US (occurrence: US)
  Receive Date: 20190121
  Receipt Date: 20190425
  Transmission Date: 20190711
  Serious: No
  Sender: FDA-Public Use
  Company Number: US-009507513-1901USA006315

PATIENT
  Sex: Male
  Weight: 100.7 kg

DRUGS (1)
  1. COZAAR [Suspect]
     Active Substance: LOSARTAN POTASSIUM
     Dosage: UNK
     Route: 048
     Dates: start: 1997

REACTIONS (3)
  - Urine flow decreased [Unknown]
  - Adverse event [Unknown]
  - Dysuria [Unknown]

NARRATIVE: CASE EVENT DATE: 1997
